FAERS Safety Report 15699345 (Version 1)
Quarter: 2018Q4

REPORT INFORMATION
  Report Type: Spontaneous
  Country: CN (occurrence: CN)
  Receive Date: 20181207
  Receipt Date: 20181207
  Transmission Date: 20190205
  Serious: Yes (Life-Threatening, Other)
  Sender: FDA-Public Use
  Company Number: CN-BAYER-2018-222778

PATIENT
  Age: 61 Year
  Sex: Female
  Weight: 57.6 kg

DRUGS (1)
  1. PRIMOVIST [Suspect]
     Active Substance: GADOXETATE DISODIUM
     Indication: SCAN WITH CONTRAST
     Dosage: 8 ML, ONCE
     Route: 042
     Dates: start: 20180829, end: 20180829

REACTIONS (3)
  - Abdominal pain [Recovering/Resolving]
  - Cyanosis [Recovering/Resolving]
  - Erythema [Recovering/Resolving]

NARRATIVE: CASE EVENT DATE: 20180829
